FAERS Safety Report 9765631 (Version 2)
Quarter: 2014Q2

REPORT INFORMATION
  Report Type: Spontaneous
  Country: US (occurrence: US)
  Receive Date: 20131217
  Receipt Date: 20140415
  Transmission Date: 20141212
  Serious: Yes (Death, Hospitalization)
  Sender: FDA-Public Use
  Company Number: US-GLAXOSMITHKLINE-A1008850A

PATIENT
  Age: 48 Year
  Sex: Male
  Weight: 100 kg

DRUGS (6)
  1. VOTRIENT [Suspect]
     Indication: ILL-DEFINED DISORDER
     Dosage: 800MG PER DAY
     Route: 048
     Dates: start: 201211, end: 201308
  2. BETA BLOCKER [Suspect]
     Indication: PRODUCT USED FOR UNKNOWN INDICATION
     Route: 065
  3. VERAPAMIL ER [Concomitant]
  4. ALEVE [Concomitant]
  5. NORCO [Concomitant]
  6. STOOL SOFTENER [Concomitant]

REACTIONS (17)
  - Metastatic renal cell carcinoma [Fatal]
  - Hypertension [Recovered/Resolved]
  - Disease progression [Unknown]
  - Dyspnoea [Not Recovered/Not Resolved]
  - Drug interaction [Recovered/Resolved]
  - Nephrectomy [Unknown]
  - Nausea [Recovered/Resolved]
  - Epistaxis [Recovered/Resolved]
  - General physical health deterioration [Unknown]
  - Pleural effusion [Unknown]
  - Pericardial effusion [Unknown]
  - Pleuritic pain [Not Recovered/Not Resolved]
  - Fatigue [Recovered/Resolved]
  - Asthenia [Recovered/Resolved]
  - Anaemia [Unknown]
  - Sleep apnoea syndrome [Unknown]
  - Anxiety [Unknown]
